FAERS Safety Report 18502343 (Version 1)
Quarter: 2020Q4

REPORT INFORMATION
  Report Type: Other
  Country: US (occurrence: US)
  Receive Date: 20201113
  Receipt Date: 20201113
  Transmission Date: 20210114
  Serious: No
  Sender: FDA-Public Use
  Company Number: US-LEADIANT BIOSCIENCES INC-2020STPI000326

PATIENT
  Age: 53 Year
  Sex: Female

DRUGS (6)
  1. TOPROL XL [Concomitant]
     Active Substance: METOPROLOL SUCCINATE
  2. CYSTARAN [Suspect]
     Active Substance: CYSTEAMINE HYDROCHLORIDE
     Indication: CYSTINOSIS
     Dosage: 15 MILLILITER, IN EACH EYE EVERY 1 TO 2 HOURS
     Route: 047
     Dates: start: 20151015
  3. TRINTELLIX [Concomitant]
     Active Substance: VORTIOXETINE HYDROBROMIDE
  4. PREDNISONE. [Concomitant]
     Active Substance: PREDNISONE
  5. SYNTHROID [Concomitant]
     Active Substance: LEVOTHYROXINE SODIUM
  6. COUMADIN [Concomitant]
     Active Substance: WARFARIN SODIUM

REACTIONS (1)
  - Eye irritation [Unknown]

NARRATIVE: CASE EVENT DATE: 20200730
